FAERS Safety Report 4299805-X (Version None)
Quarter: 2004Q1

REPORT INFORMATION
  Report Type: 
  Country: None (occurrence: None)
  Receive Date: 20040126
  Receipt Date: 20031118
  Transmission Date: 20041129
  Serious: No
  Sender: FDA-Public Use
  Company Number: USA031152827

PATIENT
  Age: 10 Year
  Sex: Female
  Weight: 29 kg

DRUGS (2)
  1. STRATTERA [Suspect]
     Indication: ATTENTION DEFICIT/HYPERACTIVITY DISORDER
     Dosage: 40 MG/DAY
     Dates: end: 20031001
  2. CLARITIN [Concomitant]

REACTIONS (1)
  - DYSPHAGIA [None]
